FAERS Safety Report 6964739-6 (Version None)
Quarter: 2010Q3

REPORT INFORMATION
  Report Type: 
  Country: None (occurrence: None)
  Receive Date: 20100903
  Receipt Date: 20100824
  Transmission Date: 20110219
  Serious: Yes (Other)
  Sender: FDA-Public Use
  Company Number: GB-PFIZER INC-2010093616

PATIENT
  Age: 91 Year
  Sex: Male
  Weight: 76 kg

DRUGS (5)
  1. MAXIDEX [Suspect]
     Dosage: UNK
     Route: 061
     Dates: start: 20100710, end: 20100714
  2. ACETYLSALICYLIC ACID [Concomitant]
  3. FELODIPINE [Concomitant]
  4. NICORANDIL [Concomitant]
  5. RANITIDINE [Concomitant]

REACTIONS (4)
  - LIP SWELLING [None]
  - MOUTH ULCERATION [None]
  - OEDEMA MOUTH [None]
  - ORAL MUCOSAL EXFOLIATION [None]
